FAERS Safety Report 20696129 (Version 2)
Quarter: 2022Q2

REPORT INFORMATION
  Report Type: Spontaneous
  Country: JP (occurrence: JP)
  Receive Date: 20220411
  Receipt Date: 20220426
  Transmission Date: 20220720
  Serious: Yes (Hospitalization)
  Sender: FDA-Public Use
  Company Number: JP-BAYER-2022A047017

PATIENT
  Age: 33 Year
  Sex: Male

DRUGS (1)
  1. KOVALTRY [Suspect]
     Active Substance: ANTIHEMOPHILIC FACTOR, HUMAN RECOMBINANT
     Indication: Factor VIII deficiency
     Dosage: VIAL, TWICE DAILY
     Dates: start: 20210302

REACTIONS (3)
  - Haematochezia [Recovering/Resolving]
  - Melaena [Recovering/Resolving]
  - Haemorrhoid operation [Recovering/Resolving]

NARRATIVE: CASE EVENT DATE: 20220308
